FAERS Safety Report 16345359 (Version 1)
Quarter: 2019Q2

REPORT INFORMATION
  Report Type: Spontaneous
  Country: US (occurrence: US)
  Receive Date: 20190523
  Receipt Date: 20190523
  Transmission Date: 20190711
  Serious: Yes (Other)
  Sender: FDA-Public Use
  Company Number: US-AMGEN-USASP2019078158

PATIENT
  Age: 76 Year
  Sex: Female

DRUGS (1)
  1. PROLIA [Suspect]
     Active Substance: DENOSUMAB
     Indication: OSTEOPOROSIS
     Dosage: 60 MILLIGRAM, Q6MO
     Route: 065
     Dates: start: 2016

REACTIONS (13)
  - Fall [Unknown]
  - Rash generalised [Unknown]
  - Urinary incontinence [Unknown]
  - Contusion [Unknown]
  - Influenza like illness [Unknown]
  - Tooth loss [Unknown]
  - Dizziness [Unknown]
  - Rectal haemorrhage [Unknown]
  - Tremor [Unknown]
  - Hypoaesthesia [Unknown]
  - Seizure [Unknown]
  - Dyspnoea [Unknown]
  - Skin laceration [Unknown]

NARRATIVE: CASE EVENT DATE: 2016
